FAERS Safety Report 7037142-0 (Version None)
Quarter: 2010Q4

REPORT INFORMATION
  Report Type: 
  Country: None (occurrence: None)
  Receive Date: 20101011
  Receipt Date: 20100927
  Transmission Date: 20110411
  Serious: Yes (Other)
  Sender: FDA-Public Use
  Company Number: GR-ELI_LILLY_AND_COMPANY-GR201009007604

PATIENT
  Age: 58 Year
  Sex: Female

DRUGS (3)
  1. FORTEO [Suspect]
     Indication: OSTEOPOROSIS
     Dosage: 20 UG, DAILY (1/D)
     Route: 058
     Dates: start: 20090901, end: 20100601
  2. THYROX [Concomitant]
     Indication: HYPOTHYROIDISM
     Dosage: UNK UNK, DAILY (1/D)
     Route: 048
  3. ANTI-INFLAMMATORY [Concomitant]
     Dosage: UNK, UNK
     Route: 048

REACTIONS (1)
  - ASTROCYTOMA [None]
